FAERS Safety Report 10060793 (Version 1)
Quarter: 2014Q2

REPORT INFORMATION
  Report Type: Spontaneous
  Country: US (occurrence: US)
  Receive Date: 20140404
  Receipt Date: 20140404
  Transmission Date: 20141212
  Serious: Yes (Hospitalization)
  Sender: FDA-Public Use
  Company Number: US-BAXTER-2014BAX016027

PATIENT
  Age: 5 Year
  Sex: Male

DRUGS (2)
  1. GAMMAGARD LIQUID [Suspect]
     Indication: KAWASAKI^S DISEASE
     Route: 042
     Dates: start: 20140317
  2. GAMMAGARD LIQUID [Suspect]
     Route: 042
     Dates: start: 20140324

REACTIONS (1)
  - Anaemia [Recovering/Resolving]
